FAERS Safety Report 10792340 (Version 2)
Quarter: 2015Q3

REPORT INFORMATION
  Report Type: Spontaneous
  Country: US (occurrence: US)
  Receive Date: 20150213
  Receipt Date: 20150716
  Transmission Date: 20151125
  Serious: Yes (Other)
  Sender: FDA-Public Use
  Company Number: US-ASTRAZENECA-2015SE13522

PATIENT
  Age: 19526 Day
  Sex: Male
  Weight: 91.2 kg

DRUGS (18)
  1. ENALAPRIL MALEATE. [Concomitant]
     Active Substance: ENALAPRIL MALEATE
     Route: 048
  2. GLYBURIDE. [Concomitant]
     Active Substance: GLYBURIDE
     Route: 048
     Dates: start: 20061002
  3. CRESTOR [Concomitant]
     Active Substance: ROSUVASTATIN CALCIUM
     Route: 065
  4. SIMVASTATIN. [Concomitant]
     Active Substance: SIMVASTATIN
     Route: 048
     Dates: start: 20061221
  5. TEMAZEPAM. [Concomitant]
     Active Substance: TEMAZEPAM
     Route: 065
  6. BYETTA [Suspect]
     Active Substance: EXENATIDE
     Indication: TYPE 2 DIABETES MELLITUS
     Route: 065
     Dates: start: 20070622, end: 201004
  7. LIPITOR [Concomitant]
     Active Substance: ATORVASTATIN CALCIUM
     Route: 048
  8. VITAMIN D [Concomitant]
     Active Substance: CHOLECALCIFEROL
     Route: 048
  9. KEFLEX [Concomitant]
     Active Substance: CEPHALEXIN
     Route: 065
     Dates: start: 20090131, end: 20120713
  10. ASPIRIN. [Concomitant]
     Active Substance: ASPIRIN
     Route: 048
  11. VASERETIC [Concomitant]
     Active Substance: ENALAPRIL MALEATE\HYDROCHLOROTHIAZIDE
     Route: 065
  12. VICTOZA [Suspect]
     Active Substance: LIRAGLUTIDE
     Indication: TYPE 2 DIABETES MELLITUS
     Route: 065
     Dates: start: 20100412, end: 20140417
  13. VICTOZA [Suspect]
     Active Substance: LIRAGLUTIDE
     Indication: TYPE 2 DIABETES MELLITUS
     Route: 065
     Dates: start: 20120904, end: 20121217
  14. BYETTA [Suspect]
     Active Substance: EXENATIDE
     Indication: TYPE 2 DIABETES MELLITUS
     Dosage: 5 MCG TWICE DAILY
     Route: 058
     Dates: start: 20070820, end: 20120713
  15. TAGAMET [Concomitant]
     Active Substance: CIMETIDINE
     Dosage: AS NEEDED 1 TO 2 TAB
     Route: 048
  16. LEVAQUIN [Concomitant]
     Active Substance: LEVOFLOXACIN
     Route: 048
     Dates: start: 20070417, end: 20120713
  17. GLUCOPHAGE [Concomitant]
     Active Substance: METFORMIN HYDROCHLORIDE
     Route: 065
  18. OMEPRAZOLE. [Concomitant]
     Active Substance: OMEPRAZOLE
     Route: 048

REACTIONS (1)
  - Pancreatic neuroendocrine tumour [Unknown]

NARRATIVE: CASE EVENT DATE: 20140618
